FAERS Safety Report 25315413 (Version 2)
Quarter: 2025Q2

REPORT INFORMATION
  Report Type: Spontaneous
  Country: US (occurrence: US)
  Receive Date: 20250514
  Receipt Date: 20250608
  Transmission Date: 20250717
  Serious: No
  Sender: BIOGEN
  Company Number: US-BIOGEN-2025BI01310427

PATIENT
  Age: 65 Year
  Sex: Male

DRUGS (2)
  1. SKYCLARYS [Suspect]
     Active Substance: OMAVELOXOLONE
     Indication: Friedreich^s ataxia
     Route: 050
     Dates: start: 20250314
  2. SKYCLARYS [Suspect]
     Active Substance: OMAVELOXOLONE
     Route: 050
     Dates: start: 20250314

REACTIONS (4)
  - COVID-19 [Unknown]
  - Speech disorder [Unknown]
  - Blood cholesterol increased [Unknown]
  - Procedural pain [Unknown]

NARRATIVE: CASE EVENT DATE: 20250501
